FAERS Safety Report 9228785 (Version 1)
Quarter: 2013Q2

REPORT INFORMATION
  Report Type: Spontaneous
  Country: SE (occurrence: SE)
  Receive Date: 20130412
  Receipt Date: 20130419
  Transmission Date: 20140414
  Serious: Yes (Other)
  Sender: FDA-Public Use
  Company Number: SE-009507513-1304SWE003213

PATIENT
  Age: 1 Day
  Sex: Male

DRUGS (9)
  1. CLARITYNE [Suspect]
     Dosage: 10 MG, QD
     Route: 048
  2. BETNOVATE [Suspect]
  3. LOCOID [Suspect]
  4. LEVAXIN [Suspect]
     Dosage: 150 DF, QD
     Route: 048
  5. RHINOCORT AQUA [Concomitant]
  6. NIFEREX [Concomitant]
  7. GAVISCON (CALCIUM CARBONATE (+) SODIUM ALGINATE (+) SODIUM BICARBONATE [Concomitant]
  8. KAVEPENIN [Concomitant]
  9. MILDISON LIPID [Concomitant]

REACTIONS (1)
  - Congenital genitourinary abnormality [Recovered/Resolved with Sequelae]
